FAERS Safety Report 23814102 (Version 1)
Quarter: 2024Q2

REPORT INFORMATION
  Report Type: Spontaneous
  Country: NL (occurrence: NL)
  Receive Date: 20240503
  Receipt Date: 20240503
  Transmission Date: 20240715
  Serious: Yes (Death)
  Sender: FDA-Public Use
  Company Number: None

PATIENT
  Age: 25 Year
  Sex: Male

DRUGS (1)
  1. LACOSAMIDE [Suspect]
     Active Substance: LACOSAMIDE
     Indication: Epilepsy
     Dosage: LACOSAMIDE TEVA FILMOMHULD ?2D 4 TABLETS
     Route: 065
     Dates: start: 20230324

REACTIONS (2)
  - Epilepsy [Fatal]
  - Product substitution issue [Unknown]
